FAERS Safety Report 4355052-4 (Version None)
Quarter: 2004Q2

REPORT INFORMATION
  Report Type: 
  Country: None (occurrence: None)
  Receive Date: 20040504
  Receipt Date: 20040428
  Transmission Date: 20050107
  Serious: Yes (Hospitalization)
  Sender: FDA-Public Use
  Company Number: 200410823BCC

PATIENT
  Age: 47 Year
  Sex: Female
  Weight: 68.9467 kg

DRUGS (14)
  1. RID MOUSSE [Suspect]
     Indication: LICE INFESTATION
     Dosage: TOPICAL
     Route: 061
     Dates: start: 20031101
  2. RISPERDAL [Concomitant]
  3. PAXIL [Concomitant]
  4. LORAZEPAM [Concomitant]
  5. PRINIVIL [Concomitant]
  6. MICRONASE [Concomitant]
  7. AVANDIA [Concomitant]
  8. LANTUS [Concomitant]
  9. DETROL [Concomitant]
  10. FERROUS GLUCONATE [Concomitant]
  11. BENADRYL [Concomitant]
  12. AUGMENTIN [Concomitant]
  13. AMOXICILLIN [Concomitant]
  14. MAGNESIUM OXIDE [Concomitant]

REACTIONS (5)
  - DISEASE RECURRENCE [None]
  - LICE INFESTATION [None]
  - SCAB [None]
  - SKIN ULCER [None]
  - TREATMENT NONCOMPLIANCE [None]
